FAERS Safety Report 9922240 (Version 1)
Quarter: 2014Q1

REPORT INFORMATION
  Report Type: Spontaneous
  Country: US (occurrence: None)
  Receive Date: 20140224
  Receipt Date: 20140224
  Transmission Date: 20141002
  Serious: Yes (Other)
  Sender: FDA-Public Use
  Company Number: None

PATIENT
  Age: 32 Year
  Sex: Female

DRUGS (2)
  1. WARFARIN [Suspect]
     Indication: PULMONARY EMBOLISM
     Route: 048
     Dates: start: 20140819
  2. WARFARIN [Suspect]
     Indication: PROTEIN S ABNORMAL
     Route: 048
     Dates: start: 20140819

REACTIONS (1)
  - No therapeutic response [None]
